FAERS Safety Report 10790067 (Version 2)
Quarter: 2015Q2

REPORT INFORMATION
  Report Type: Spontaneous
  Country: DE (occurrence: DE)
  Receive Date: 20150212
  Receipt Date: 20150409
  Transmission Date: 20150821
  Serious: Yes (Disabling)
  Sender: FDA-Public Use
  Company Number: DE-JNJFOC-20150202246

PATIENT
  Age: 75 Year
  Sex: Male

DRUGS (9)
  1. XARELTO [Suspect]
     Active Substance: RIVAROXABAN
     Indication: CEREBROVASCULAR ACCIDENT PROPHYLAXIS
     Dosage: 1 TABLET IN THE MORNINGS
     Route: 048
  2. XARELTO [Suspect]
     Active Substance: RIVAROXABAN
     Indication: ATRIAL FIBRILLATION
     Dosage: 1 TABLET IN THE MORNINGS
     Route: 048
  3. ASPIRIN PROTECT [Concomitant]
     Active Substance: ASPIRIN
     Dosage: 1 TABLET IN THE EVENING
  4. AMLODIPINE [Concomitant]
     Active Substance: AMLODIPINE BESYLATE
     Dosage: 1 TABLET IN THE MORNING
     Route: 065
  5. PREDNISOLON [Concomitant]
     Active Substance: PREDNISOLONE
     Dosage: 1/2 TABLET AT A TIME IN THE MORNINGS AND IN THE EVENINGS
     Route: 065
  6. MAGNESIUM ASPARTATE [Concomitant]
     Active Substance: MAGNESIUM ASPARTATE
     Dosage: 1 TABLET IN THE MORNING
     Route: 065
  7. PANTOZOL [Concomitant]
     Active Substance: PANTOPRAZOLE SODIUM
     Dosage: 1 TABLET IN EVENING
     Route: 065
  8. BISOPROLOL FUMARATE. [Concomitant]
     Active Substance: BISOPROLOL FUMARATE
     Dosage: HALF TABLET IN THE MORNING
     Route: 065
  9. VALSARTAN. [Concomitant]
     Active Substance: VALSARTAN
     Dosage: 1/2 TABLET AT A TIME IN THE MORNINGS AND IN THE EVENINGS
     Route: 065

REACTIONS (3)
  - Cerebral infarction [Recovered/Resolved]
  - Aphasia [Not Recovered/Not Resolved]
  - Hemiparesis [Not Recovered/Not Resolved]

NARRATIVE: CASE EVENT DATE: 20140703
